FAERS Safety Report 24205428 (Version 1)
Quarter: 2024Q3

REPORT INFORMATION
  Report Type: Spontaneous
  Country: CN (occurrence: CN)
  Receive Date: 20240813
  Receipt Date: 20240813
  Transmission Date: 20241017
  Serious: Yes (Life-Threatening, Hospitalization)
  Sender: BAYER
  Company Number: CN-BAYER-2024A116227

PATIENT
  Age: 76 Year
  Sex: Male
  Weight: 58 kg

DRUGS (1)
  1. ULTRAVIST [Suspect]
     Active Substance: IOPROMIDE
     Indication: Transient ischaemic attack
     Dosage: 55 ML, ONCE
     Route: 042
     Dates: start: 20240807, end: 20240807

REACTIONS (7)
  - Shock [Recovering/Resolving]
  - Cold sweat [None]
  - Loss of consciousness [Recovered/Resolved]
  - Urinary incontinence [None]
  - Dizziness [None]
  - Hypoaesthesia oral [None]
  - Physical examination abnormal [Recovered/Resolved]

NARRATIVE: CASE EVENT DATE: 20240807
